FAERS Safety Report 5775846-8 (Version None)
Quarter: 2008Q2

REPORT INFORMATION
  Report Type: 
  Country: None (occurrence: None)
  Receive Date: 20080617
  Receipt Date: 20080603
  Transmission Date: 20081010
  Serious: Yes (Death)
  Sender: FDA-Public Use
  Company Number: BE-GENENTECH-262613

PATIENT
  Sex: Female

DRUGS (3)
  1. MABTHERA [Suspect]
     Indication: CRYOGLOBULINAEMIA
     Dosage: 600 MG, UNK
     Route: 042
     Dates: start: 20080521
  2. BACTRIM [Concomitant]
     Indication: INFECTION PROPHYLAXIS
  3. MEDROL [Concomitant]
     Indication: CRYOGLOBULINAEMIA

REACTIONS (2)
  - DISEASE PROGRESSION [None]
  - PLEURAL EFFUSION [None]
